FAERS Safety Report 7962951-0 (Version None)
Quarter: 2011Q4

REPORT INFORMATION
  Report Type: 
  Country: None (occurrence: None)
  Receive Date: 20111207
  Receipt Date: 20111129
  Transmission Date: 20120403
  Serious: Yes (Other)
  Sender: FDA-Public Use
  Company Number: US-RB-035120-11

PATIENT
  Sex: Female

DRUGS (3)
  1. SUBOXONE [Suspect]
     Indication: DRUG DEPENDENCE
     Route: 060
     Dates: start: 20111013
  2. SUBOXONE [Suspect]
     Route: 060
     Dates: start: 20110101, end: 20110301
  3. SUBUTEX [Suspect]
     Indication: DRUG DEPENDENCE
     Route: 060
     Dates: start: 20110601, end: 20111012

REACTIONS (5)
  - HYPOAESTHESIA ORAL [None]
  - SYNCOPE [None]
  - SWELLING FACE [None]
  - MATERNAL EXPOSURE DURING PREGNANCY [None]
  - CONVULSION [None]
